FAERS Safety Report 8631128 (Version 8)
Quarter: 2013Q3

REPORT INFORMATION
  Report Type: Spontaneous
  Country: US (occurrence: US)
  Receive Date: 20120622
  Receipt Date: 20130930
  Transmission Date: 20140515
  Serious: Yes (Hospitalization, Other)
  Sender: FDA-Public Use
  Company Number: US-ACTELION-A-US2012-62616

PATIENT
  Age: 34 Year
  Sex: Female

DRUGS (5)
  1. TRACLEER [Suspect]
     Indication: PULMONARY ARTERIAL HYPERTENSION
     Dosage: UNK
     Route: 048
  2. TRACLEER [Suspect]
     Dosage: UNK
     Route: 048
  3. REMODULIN [Suspect]
     Route: 042
  4. REVATIO [Concomitant]
     Dosage: 40 MG, TID
  5. COUMADIN [Concomitant]

REACTIONS (10)
  - Enterobacter sepsis [Recovered/Resolved]
  - Device related sepsis [Recovered/Resolved]
  - Device related infection [Recovered/Resolved]
  - Catheter site infection [Unknown]
  - Catheter site erythema [Unknown]
  - Catheter site swelling [Unknown]
  - Catheter site pain [Unknown]
  - Catheter site discharge [Unknown]
  - Drug dose omission [Unknown]
  - Pulmonary arterial hypertension [Unknown]
